FAERS Safety Report 17749419 (Version 1)
Quarter: 2020Q2

REPORT INFORMATION
  Report Type: Spontaneous
  Country: US (occurrence: US)
  Receive Date: 20200506
  Receipt Date: 20200506
  Transmission Date: 20200714
  Serious: No
  Sender: FDA-Public Use
  Company Number: US-LUPIN PHARMACEUTICALS INC.-2020-01278

PATIENT
  Age: 67 Year
  Sex: Female
  Weight: 29 kg

DRUGS (1)
  1. OSELTAMIVIR PHOSPHATE CAPSULES USP, 75 MG (BASE) [Suspect]
     Active Substance: OSELTAMIVIR PHOSPHATE
     Indication: INFLUENZA
     Dosage: 75 MILLIGRAM, QD
     Route: 048
     Dates: start: 20200226, end: 20200227

REACTIONS (4)
  - Influenza [Recovering/Resolving]
  - Mood altered [Recovered/Resolved]
  - Abnormal dreams [Recovered/Resolved]
  - Thinking abnormal [Recovered/Resolved]

NARRATIVE: CASE EVENT DATE: 20200226
